FAERS Safety Report 23694327 (Version 3)
Quarter: 2024Q3

REPORT INFORMATION
  Report Type: Report from Study
  Country: CA (occurrence: CA)
  Receive Date: 20240401
  Receipt Date: 20240719
  Transmission Date: 20241017
  Serious: Yes (Death, Hospitalization, Other)
  Sender: HLS THERAPEUTICS
  Company Number: CA-HLS-202400888

PATIENT
  Age: 75 Year
  Sex: Female

DRUGS (1)
  1. CLOZARIL [Suspect]
     Active Substance: CLOZAPINE
     Indication: Schizophrenia
     Dosage: 400 MG DAILY
     Route: 048
     Dates: start: 20130102, end: 20240216

REACTIONS (2)
  - Pneumonia aspiration [Fatal]
  - Iron deficiency anaemia [Unknown]

NARRATIVE: CASE EVENT DATE: 20240212
